FAERS Safety Report 24387271 (Version 1)
Quarter: 2024Q4

REPORT INFORMATION
  Report Type: Spontaneous
  Country: NL (occurrence: NL)
  Receive Date: 20241002
  Receipt Date: 20241002
  Transmission Date: 20250115
  Serious: Yes (Hospitalization)
  Sender: ACCORD
  Company Number: None

PATIENT
  Age: 56 Year
  Sex: Female
  Weight: 79.1 kg

DRUGS (7)
  1. FLUOROURACIL [Suspect]
     Active Substance: FLUOROURACIL
     Indication: Pancreatic carcinoma
     Dosage: 1 X PER DAY 4700MG 2 DAYS. INJECTION/INFUSION
     Dates: start: 20240830
  2. OXYCODONE HYDROCHLORIDE [Concomitant]
     Active Substance: OXYCODONE HYDROCHLORIDE
     Dosage: ORODISPERSIBLE TABLET, 5 MG
  3. OXALIPLATIN [Concomitant]
     Active Substance: OXALIPLATIN
     Dosage: SUPPOSITORY, INFUSION
  4. ACETAMINOPHEN\ASPIRIN [Concomitant]
     Active Substance: ACETAMINOPHEN\ASPIRIN
     Dosage: ZETPIL, COF TABLET 250/250/50 MG
  5. OXAZEPAM [Concomitant]
     Active Substance: OXAZEPAM
     Dosage: TABLET, 10 MG
  6. IRINOTECAN [Concomitant]
     Active Substance: IRINOTECAN
     Dosage: INFUSION, SUPPOSITORY
  7. LEUCOVORIN [Concomitant]
     Active Substance: LEUCOVORIN\LEUCOVORIN CALCIUM
     Dosage: SUPPOSITORY, SOLUTION FOR INJECTION 10 MG/ML

REACTIONS (1)
  - Neutropenic colitis [Recovering/Resolving]
